FAERS Safety Report 13223476 (Version 1)
Quarter: 2017Q1

REPORT INFORMATION
  Report Type: Other
  Country: US (occurrence: US)
  Receive Date: 20170212
  Receipt Date: 20170212
  Transmission Date: 20170428
  Serious: No
  Sender: FDA-Public Use
  Company Number: US-ACORDA-ACO_125520_2016

PATIENT
  Age: 49 Year
  Sex: Female

DRUGS (3)
  1. AMPYRA [Suspect]
     Active Substance: DALFAMPRIDINE
     Dosage: 10 MG, BID
     Route: 048
     Dates: start: 20141216
  2. TECFIDERA [Suspect]
     Active Substance: DIMETHYL FUMARATE
     Indication: PRODUCT USED FOR UNKNOWN INDICATION
     Dosage: UNK
     Dates: end: 201510
  3. AMPYRA [Suspect]
     Active Substance: DALFAMPRIDINE
     Indication: MULTIPLE SCLEROSIS
     Dosage: 10 MG, BID
     Route: 048
     Dates: start: 20141216

REACTIONS (11)
  - CD4 lymphocyte percentage decreased [Not Recovered/Not Resolved]
  - Red blood cell count decreased [Unknown]
  - T-lymphocyte count decreased [Unknown]
  - Haematocrit [Unknown]
  - Vitamin D increased [Unknown]
  - Lymphopenia [Unknown]
  - T-lymphocyte count decreased [Not Recovered/Not Resolved]
  - Natural killer cell count increased [Unknown]
  - Haemoglobin [Unknown]
  - Mean cell volume increased [Unknown]
  - CD4 lymphocytes decreased [Unknown]

NARRATIVE: CASE EVENT DATE: 20160507
